FAERS Safety Report 17467694 (Version 2)
Quarter: 2020Q1

REPORT INFORMATION
  Report Type: Spontaneous
  Country: US (occurrence: US)
  Receive Date: 20200227
  Receipt Date: 20200316
  Transmission Date: 20200409
  Serious: Yes (Other)
  Sender: FDA-Public Use
  Company Number: US-PFIZER INC-2020085086

PATIENT
  Age: 71 Year
  Sex: Female
  Weight: 163.29 kg

DRUGS (2)
  1. CBD OIL [Concomitant]
     Active Substance: CANNABIDIOL\HERBALS
     Indication: ANXIETY
     Dosage: UNK (UP TO 30MG DAILY)
     Dates: start: 201911
  2. DETROL LA [Suspect]
     Active Substance: TOLTERODINE TARTRATE
     Indication: URINARY INCONTINENCE
     Dosage: 4 MG, DAILY
     Route: 048

REACTIONS (2)
  - Macular degeneration [Unknown]
  - Feeling abnormal [Not Recovered/Not Resolved]

NARRATIVE: CASE EVENT DATE: 202002
